FAERS Safety Report 8789386 (Version 1)
Quarter: 2012Q4

REPORT INFORMATION
  Report Type: Spontaneous
  Country: US (occurrence: None)
  Receive Date: 20120904
  Receipt Date: 20120904
  Transmission Date: 20130627
  Serious: Yes (Hospitalization)
  Sender: FDA-Public Use
  Company Number: 20120521

PATIENT
  Age: 53 Year
  Sex: Male

DRUGS (3)
  1. HYDRALAZINE HCL [Suspect]
     Indication: PORTAL HYPERTENSION
  2. HYDRALAZINE HCL [Suspect]
     Indication: ASCITES
  3. FUROSEMIDE [Concomitant]

REACTIONS (7)
  - Lupus-like syndrome [None]
  - Acute febrile neutrophilic dermatosis [None]
  - Chest pain [None]
  - Pleural effusion [None]
  - Pericardial effusion [None]
  - Haematuria [None]
  - Aphthous stomatitis [None]
